FAERS Safety Report 6188628-2 (Version None)
Quarter: 2009Q2

REPORT INFORMATION
  Report Type: 
  Country: None (occurrence: None)
  Receive Date: 20090513
  Receipt Date: 20090507
  Transmission Date: 20091009
  Serious: Yes (Other)
  Sender: FDA-Public Use
  Company Number: B0573580A

PATIENT
  Sex: Male

DRUGS (1)
  1. SERETIDE [Suspect]
     Indication: BRONCHITIS CHRONIC
     Route: 055

REACTIONS (5)
  - AGGRESSION [None]
  - AGITATION [None]
  - DRY THROAT [None]
  - HEADACHE [None]
  - MALAISE [None]
